FAERS Safety Report 16361213 (Version 1)
Quarter: 2019Q2

REPORT INFORMATION
  Report Type: Spontaneous
  Country: US (occurrence: US)
  Receive Date: 20190419
  Receipt Date: 20190419
  Transmission Date: 20190711
  Serious: No
  Sender: FDA-Public Use
  Company Number: None

PATIENT
  Age: 53 Year
  Sex: Female

DRUGS (1)
  1. COPAXONE [Suspect]
     Active Substance: GLATIRAMER ACETATE
     Indication: MULTIPLE SCLEROSIS
     Route: 058
     Dates: start: 20180312

REACTIONS (5)
  - Feeling cold [None]
  - Feeling abnormal [None]
  - Tremor [None]
  - Myalgia [None]
  - Palpitations [None]

NARRATIVE: CASE EVENT DATE: 20190401
